FAERS Safety Report 17843824 (Version 1)
Quarter: 2020Q2

REPORT INFORMATION
  Report Type: Spontaneous
  Country: DE (occurrence: DE)
  Receive Date: 20200531
  Receipt Date: 20200531
  Transmission Date: 20200714
  Serious: Yes (Death, Other)
  Sender: FDA-Public Use
  Company Number: DE-009507513-2004DEU002140

PATIENT
  Sex: Male

DRUGS (1)
  1. KEYTRUDA [Suspect]
     Active Substance: PEMBROLIZUMAB
     Dosage: UNK
     Dates: start: 20200402

REACTIONS (3)
  - Fluid retention [Not Recovered/Not Resolved]
  - Death [Fatal]
  - Feeling hot [Recovered/Resolved]

NARRATIVE: CASE EVENT DATE: 20200402
